FAERS Safety Report 6651945-3 (Version None)
Quarter: 2010Q1

REPORT INFORMATION
  Report Type: 
  Country: None (occurrence: None)
  Receive Date: 20100325
  Receipt Date: 20100319
  Transmission Date: 20100710
  Serious: Yes (Death, Other)
  Sender: FDA-Public Use
  Company Number: AU-WYE-G02474308

PATIENT
  Sex: Female

DRUGS (8)
  1. EFFEXOR [Suspect]
     Indication: DEPRESSION
     Dates: start: 20040801, end: 20060101
  2. EFFEXOR [Suspect]
     Indication: ANXIETY DISORDER
     Dosage: 75MG
     Dates: start: 20060401
  3. EFFEXOR [Suspect]
     Dosage: 112.5MG DAILY
     Dates: start: 20061101
  4. EFFEXOR [Suspect]
     Dates: start: 20070701, end: 20071016
  5. EFFEXOR [Suspect]
     Dates: start: 20071017
  6. ERYTHROMYCIN [Concomitant]
     Dosage: 20MG/G (2%) GEL, 1 DAILY
  7. LEXAPRO [Concomitant]
     Indication: DEPRESSION
     Dosage: 5MG DAILY
     Dates: start: 20071026, end: 20071028
  8. LEXAPRO [Concomitant]
     Indication: ANXIETY DISORDER
     Dosage: 10MG DAILY
     Dates: start: 20071029

REACTIONS (35)
  - AGITATION [None]
  - ANXIETY [None]
  - BIPOLAR DISORDER [None]
  - COGNITIVE DISORDER [None]
  - COMPLETED SUICIDE [None]
  - CONDITION AGGRAVATED [None]
  - CONFUSIONAL STATE [None]
  - CRYING [None]
  - DISTRACTIBILITY [None]
  - DISTURBANCE IN ATTENTION [None]
  - DRUG EFFECT DECREASED [None]
  - DRUG INEFFECTIVE [None]
  - DRUG WITHDRAWAL SYNDROME [None]
  - FEELING ABNORMAL [None]
  - FEELING GUILTY [None]
  - IMPAIRED DRIVING ABILITY [None]
  - IMPULSIVE BEHAVIOUR [None]
  - INSOMNIA [None]
  - INTENTIONAL DRUG MISUSE [None]
  - MALAISE [None]
  - MEMORY IMPAIRMENT [None]
  - MENTAL STATUS CHANGES [None]
  - NERVOUSNESS [None]
  - NONSPECIFIC REACTION [None]
  - OBSESSIVE THOUGHTS [None]
  - PANIC ATTACK [None]
  - PSYCHOMOTOR HYPERACTIVITY [None]
  - RESTLESSNESS [None]
  - ROAD TRAFFIC ACCIDENT [None]
  - SELF ESTEEM DECREASED [None]
  - SEXUAL DYSFUNCTION [None]
  - SPEECH DISORDER [None]
  - SUICIDAL IDEATION [None]
  - THINKING ABNORMAL [None]
  - UNEVALUABLE EVENT [None]
